FAERS Safety Report 8780251 (Version 1)
Quarter: 2012Q4

REPORT INFORMATION
  Report Type: Spontaneous
  Country: US (occurrence: None)
  Receive Date: 20120905
  Receipt Date: 20120905
  Transmission Date: 20130627
  Serious: Yes (Disabling)
  Sender: FDA-Public Use
  Company Number: None

PATIENT
  Age: 87 Year
  Sex: Male
  Weight: 81.65 kg

DRUGS (1)
  1. ETHAMBUTOL [Suspect]
     Indication: LUNG INFECTION
     Dosage: 3 times /day
     Dates: start: 20111115

REACTIONS (3)
  - Blindness [None]
  - Scotoma [None]
  - Visual acuity reduced [None]
